FAERS Safety Report 14456136 (Version 1)
Quarter: 2018Q1

REPORT INFORMATION
  Report Type: Report from Study
  Country: US (occurrence: US)
  Receive Date: 20180130
  Receipt Date: 20180130
  Transmission Date: 20180509
  Serious: Yes (Death, Other)
  Sender: FDA-Public Use
  Company Number: US-MSN LABORATORIES PRIVATE LIMITED-2041022

PATIENT
  Age: 15 Year
  Sex: Female

DRUGS (4)
  1. CYCLOPHOSPHAMIDE. [Suspect]
     Active Substance: CYCLOPHOSPHAMIDE
     Route: 042
  2. ETOPOSIDE. [Suspect]
     Active Substance: ETOPOSIDE
     Route: 042
  3. FLUCONAZOLE. [Concomitant]
     Active Substance: FLUCONAZOLE
  4. CLOFARABINE. [Suspect]
     Active Substance: CLOFARABINE
     Indication: ACUTE MYELOID LEUKAEMIA
     Route: 042

REACTIONS (3)
  - Toxicity to various agents [Fatal]
  - Bone marrow failure [Unknown]
  - Product use in unapproved indication [Unknown]
